FAERS Safety Report 18200462 (Version 4)
Quarter: 2025Q4

REPORT INFORMATION
  Report Type: Spontaneous
  Country: US (occurrence: US)
  Receive Date: 20200827
  Receipt Date: 20251205
  Transmission Date: 20260117
  Serious: No
  Sender: TAKEDA
  Company Number: US-SHIRE-US202027605

PATIENT
  Sex: Female
  Weight: 56.689 kg

DRUGS (8)
  1. HYQVIA [Suspect]
     Active Substance: HUMAN IMMUNOGLOBULIN G\HYALURONIDASE (HUMAN RECOMBINANT)
     Indication: Immunodeficiency common variable
     Dosage: 9 GRAM, 1/WEEK
     Dates: start: 20190122
  2. ACETAMINOPHEN [Concomitant]
     Active Substance: ACETAMINOPHEN
     Indication: Product used for unknown indication
  3. DIPHENHYDRAMINE [Concomitant]
     Active Substance: DIPHENHYDRAMINE
     Indication: Product used for unknown indication
  4. LIDOCAINE\PRILOCAINE [Concomitant]
     Active Substance: LIDOCAINE\PRILOCAINE
     Indication: Product used for unknown indication
  5. SODIUM CHLORIDE [Concomitant]
     Active Substance: SODIUM CHLORIDE
     Indication: Product used for unknown indication
  6. EPINEPHRINE [Concomitant]
     Active Substance: EPINEPHRINE
     Indication: Product used for unknown indication
  7. SINGULAIR [Concomitant]
     Active Substance: MONTELUKAST SODIUM
     Indication: Product used for unknown indication
  8. ZYRTEC [Concomitant]
     Active Substance: CETIRIZINE HYDROCHLORIDE
     Indication: Product used for unknown indication

REACTIONS (12)
  - Throat tightness [Recovered/Resolved]
  - Salivary hyposecretion [Recovered/Resolved]
  - Hereditary angioedema [Recovered/Resolved]
  - Rash [Recovered/Resolved]
  - Lip swelling [Unknown]
  - Lip pruritus [Unknown]
  - Drug hypersensitivity [Unknown]
  - Cervical dysplasia [Unknown]
  - Migraine [Unknown]
  - Nausea [Unknown]
  - Respiratory disorder [Unknown]
  - Infection [Unknown]
